FAERS Safety Report 26146796 (Version 1)
Quarter: 2025Q4

REPORT INFORMATION
  Report Type: Spontaneous
  Country: JP (occurrence: JP)
  Receive Date: 20251211
  Receipt Date: 20251211
  Transmission Date: 20260118
  Serious: Yes (Life-Threatening, Hospitalization)
  Sender: ALEXION PHARMACEUTICALS
  Company Number: JP-ASTRAZENECA-202512JPN008085JP

PATIENT
  Age: 62 Year
  Sex: Female
  Weight: 56.9 kg

DRUGS (5)
  1. DAPAGLIFLOZIN [Suspect]
     Active Substance: DAPAGLIFLOZIN
     Indication: Anorexia nervosa
     Dosage: 5 MILLIGRAM
  2. MOUNJARO [Concomitant]
     Active Substance: TIRZEPATIDE
     Dosage: UNK
  3. OTEZLA [Concomitant]
     Active Substance: APREMILAST
     Dosage: UNK
  4. ESOMEPRAZOLE [Concomitant]
     Active Substance: ESOMEPRAZOLE
  5. NAPROXEN SODIUM [Concomitant]
     Active Substance: NAPROXEN SODIUM

REACTIONS (5)
  - Disseminated intravascular coagulation [Unknown]
  - Pyonephrosis [Unknown]
  - Sepsis [Unknown]
  - Off label use [Unknown]
  - Urinary tract infection [Unknown]
